FAERS Safety Report 9742839 (Version 2)
Quarter: 2014Q1

REPORT INFORMATION
  Report Type: Spontaneous
  Country: US (occurrence: US)
  Receive Date: 20131210
  Receipt Date: 20140110
  Transmission Date: 20141002
  Serious: No
  Sender: FDA-Public Use
  Company Number: US-PFIZER INC-2013349310

PATIENT
  Age: 64 Year
  Sex: Male
  Weight: 112.47 kg

DRUGS (2)
  1. LIPITOR [Suspect]
     Indication: STENT PLACEMENT
     Dosage: 20 MG, DAILY
     Route: 048
     Dates: start: 200204
  2. ATENOLOL [Concomitant]
     Indication: BLOOD PRESSURE ABNORMAL
     Dosage: 50 MG, DAILY

REACTIONS (2)
  - Injury [Unknown]
  - Fall [Unknown]
